APPROVED DRUG PRODUCT: LOTRONEX
Active Ingredient: ALOSETRON HYDROCHLORIDE
Strength: EQ 0.5MG BASE
Dosage Form/Route: TABLET;ORAL
Application: N021107 | Product #002 | TE Code: AB
Applicant: LEGACY PHARMA INC
Approved: Dec 23, 2003 | RLD: Yes | RS: No | Type: RX